FAERS Safety Report 21606405 (Version 1)
Quarter: 2022Q4

REPORT INFORMATION
  Report Type: Spontaneous
  Country: US (occurrence: US)
  Receive Date: 20221117
  Receipt Date: 20221117
  Transmission Date: 20230112
  Serious: No
  Sender: FDA-Public Use
  Company Number: US-VIIV HEALTHCARE LIMITED-US2022162426

PATIENT
  Sex: Male

DRUGS (1)
  1. SELZENTRY [Suspect]
     Active Substance: MARAVIROC
     Indication: Post-acute COVID-19 syndrome
     Dosage: 150 MG

REACTIONS (1)
  - Intercepted product prescribing error [Unknown]
